FAERS Safety Report 20902517 (Version 1)
Quarter: 2022Q2

REPORT INFORMATION
  Report Type: Spontaneous
  Country: IN (occurrence: IN)
  Receive Date: 20220601
  Receipt Date: 20220601
  Transmission Date: 20220721
  Serious: Yes (Hospitalization)
  Sender: FDA-Public Use
  Company Number: IN-ENDO PHARMACEUTICALS INC-2022-003245

PATIENT
  Age: 50 Year
  Sex: Male

DRUGS (7)
  1. COLY-MYCIN M [Suspect]
     Active Substance: COLISTIMETHATE SODIUM
     Indication: Culture positive
     Dosage: 1 MILLION UNIT, TID
     Route: 042
  2. COLY-MYCIN M [Suspect]
     Active Substance: COLISTIMETHATE SODIUM
     Indication: Septic shock
     Dosage: UNK UNKNOWN, UNKNOWN
     Route: 042
  3. COLY-MYCIN M [Suspect]
     Active Substance: COLISTIMETHATE SODIUM
     Indication: Acinetobacter infection
     Dosage: UNK UNKNOWN, UNKNOWN (DE-ESCALATED)
     Route: 042
  4. MEROPENEM [Concomitant]
     Active Substance: MEROPENEM
     Indication: Urosepsis
     Dosage: UNK UNKNOWN, UNKNOWN
     Route: 042
  5. MEROPENEM [Concomitant]
     Active Substance: MEROPENEM
     Dosage: UNK UNKNOWN, UNKNOWN (DE-ESCALATED)
     Route: 042
  6. LINEZOLID [Concomitant]
     Active Substance: LINEZOLID
     Indication: Urosepsis
     Dosage: UNK UNKNOWN, UNKNOWN
     Route: 042
  7. LINEZOLID [Concomitant]
     Active Substance: LINEZOLID
     Dosage: UNK UNKNOWN, UNKNOWN (DE-ESCALATED)
     Route: 042

REACTIONS (1)
  - Pseudo-Bartter syndrome [Recovered/Resolved]
